FAERS Safety Report 7994303-1 (Version None)
Quarter: 2011Q4

REPORT INFORMATION
  Report Type: 
  Country: None (occurrence: None)
  Receive Date: 20111217
  Receipt Date: 20111217
  Transmission Date: 20120403
  Serious: No
  Sender: FDA-Public Use
  Company Number: None

PATIENT
  Age: 74 Year
  Sex: Male
  Weight: 79.3795 kg

DRUGS (1)
  1. JANUVIA [Suspect]
     Indication: TYPE 2 DIABETES MELLITUS
     Dosage: 100 MG 1 DAILY ORAL STILL ON DRUG BUT ALSO TAKING PROZAC
     Route: 048

REACTIONS (3)
  - MOOD ALTERED [None]
  - IMPATIENCE [None]
  - AGGRESSION [None]
